FAERS Safety Report 24045410 (Version 1)
Quarter: 2024Q3

REPORT INFORMATION
  Report Type: Spontaneous
  Country: JP (occurrence: JP)
  Receive Date: 20240703
  Receipt Date: 20240703
  Transmission Date: 20241017
  Serious: Yes (Hospitalization)
  Sender: PHARMACOSMOS
  Company Number: JP-NEBO-662966

PATIENT
  Age: 49 Year
  Sex: Female

DRUGS (2)
  1. FERRIC DERISOMALTOSE [Suspect]
     Active Substance: FERRIC DERISOMALTOSE
     Indication: Heavy menstrual bleeding
     Dosage: 1000 MG 14-MAY-2024?500 MG 21-MAY-2024
     Dates: start: 20240514, end: 20240521
  2. RELUGOLIX [Concomitant]
     Active Substance: RELUGOLIX
     Indication: Heavy menstrual bleeding
     Dates: start: 20240606

REACTIONS (1)
  - Immune thrombocytopenia [Unknown]

NARRATIVE: CASE EVENT DATE: 20240618
